FAERS Safety Report 12108658 (Version 1)
Quarter: 2016Q1

REPORT INFORMATION
  Report Type: Spontaneous
  Country: US (occurrence: None)
  Receive Date: 20160222
  Receipt Date: 20160222
  Transmission Date: 20160526
  Serious: No
  Sender: FDA-Public Use
  Company Number: None

PATIENT
  Age: 21 Year

DRUGS (3)
  1. NORMAL SALIINE [Concomitant]
  2. PROCHLORPERAZINE. [Concomitant]
     Active Substance: PROCHLORPERAZINE
  3. MULTIHANCE [Suspect]
     Active Substance: GADOBENATE DIMEGLUMINE
     Indication: COMPUTERISED TOMOGRAM
     Route: 042
     Dates: start: 20151117, end: 20151117

REACTIONS (5)
  - Dysphagia [None]
  - Pharyngeal oedema [None]
  - Flushing [None]
  - Contrast media reaction [None]
  - Procedural complication [None]

NARRATIVE: CASE EVENT DATE: 20151117
